FAERS Safety Report 6309431-6 (Version None)
Quarter: 2009Q3

REPORT INFORMATION
  Report Type: 
  Country: None (occurrence: None)
  Receive Date: 20090814
  Receipt Date: 20090807
  Transmission Date: 20100115
  Serious: Yes (Other)
  Sender: FDA-Public Use
  Company Number: US-JNJFOC-20090803144

PATIENT

DRUGS (1)
  1. FENTANYL [Suspect]
     Indication: DRUG DIVERSION
     Route: 062

REACTIONS (2)
  - DRUG DIVERSION [None]
  - DRUG SCREEN POSITIVE [None]
